FAERS Safety Report 4390306-7 (Version None)
Quarter: 2004Q2

REPORT INFORMATION
  Report Type: 
  Country: None (occurrence: None)
  Receive Date: 20040630
  Receipt Date: 20040618
  Transmission Date: 20050107
  Serious: Yes (Hospitalization)
  Sender: FDA-Public Use
  Company Number: GBWYE411919NOV03

PATIENT
  Age: 47 Year
  Sex: Male

DRUGS (9)
  1. RAPAMUNE [Suspect]
     Indication: IMMUNOSUPPRESSANT DRUG THERAPY
     Dosage: 5 MG 1X PER 1 DAY, ORAL
     Route: 048
     Dates: start: 20031105
  2. MYCOPHENOLATE MOFETIL (MYCOPHENOLATE MOFETIL, 0) [Suspect]
     Dosage: 1 G 2X PER 1 DAY, ORAL
     Route: 048
     Dates: start: 20031105
  3. PREDNISOLONE [Suspect]
     Dosage: 20 MG 1X PER 1 DAY, ORAL
     Route: 048
     Dates: start: 20031105
  4. ZENAPAX [Suspect]
     Dosage: ONE DOSE (SECOND DOSE DUE 14-NOV-2003), INTRAVENOUS
     Route: 042
     Dates: start: 20031104, end: 20031104
  5. ASPIRIN [Concomitant]
  6. CO-PROXAMOL (DEXTROPROPOXYPHENE HYDROCHLORIDE/PARACETAMOL) [Concomitant]
  7. LACTULOSE [Concomitant]
  8. SENNA [Concomitant]
  9. GANCICLOVIR [Concomitant]

REACTIONS (5)
  - ABDOMINAL PAIN [None]
  - DIARRHOEA [None]
  - TRANSPLANT REJECTION [None]
  - WOUND INFECTION STAPHYLOCOCCAL [None]
  - WOUND SECRETION [None]
